FAERS Safety Report 24739231 (Version 1)
Quarter: 2024Q4

REPORT INFORMATION
  Report Type: Spontaneous
  Country: US (occurrence: US)
  Receive Date: 20241216
  Receipt Date: 20241216
  Transmission Date: 20250115
  Serious: Yes (Other)
  Sender: TEVA
  Company Number: US-TEVA-VS-3273858

PATIENT
  Age: 31 Year
  Sex: Male

DRUGS (2)
  1. UZEDY [Suspect]
     Active Substance: RISPERIDONE
     Indication: Schizophrenia
     Dosage: PATIENT HAD TWO DOSES OF THE UZEDY 125MG
     Route: 065
  2. UZEDY [Suspect]
     Active Substance: RISPERIDONE
     Dosage: 100/0.28MG/ML
     Route: 065
     Dates: start: 20241126

REACTIONS (2)
  - Priapism [Unknown]
  - Genital pain [Unknown]
